FAERS Safety Report 21617356 (Version 1)
Quarter: 2022Q4

REPORT INFORMATION
  Report Type: Report from Study
  Country: JP (occurrence: JP)
  Receive Date: 20221119
  Receipt Date: 20221119
  Transmission Date: 20230113
  Serious: Yes (Hospitalization)
  Sender: FDA-Public Use
  Company Number: JP-ABBVIE-19K-087-2987651-00

PATIENT
  Age: 75 Year
  Sex: Female

DRUGS (13)
  1. CARBIDOPA\LEVODOPA [Suspect]
     Active Substance: CARBIDOPA\LEVODOPA
     Indication: Parkinson^s disease
     Dosage: MD:4 ML, CD: 1.3 ML/HR X 16 HRS
     Route: 050
     Dates: start: 20200320, end: 20210817
  2. CARBIDOPA\LEVODOPA [Suspect]
     Active Substance: CARBIDOPA\LEVODOPA
     Dosage: MD: 4 ML CD: 1.7 ML/HR ? 16 HRS
     Route: 050
     Dates: start: 20190919, end: 20191101
  3. CARBIDOPA\LEVODOPA [Suspect]
     Active Substance: CARBIDOPA\LEVODOPA
     Dosage: MD: 4 ML CD: 1.6 ML/HR ? 16 HRS
     Route: 050
     Dates: start: 20191101, end: 20191112
  4. CARBIDOPA\LEVODOPA [Suspect]
     Active Substance: CARBIDOPA\LEVODOPA
     Dosage: MD: 4 ML CD: 1.5 ML/HR ? 16 HRS
     Route: 050
     Dates: start: 20191112, end: 20191126
  5. CARBIDOPA\LEVODOPA [Suspect]
     Active Substance: CARBIDOPA\LEVODOPA
     Dosage: MD: 4 ML CD: 1.4 ML/HR ? 16 HRS
     Route: 050
     Dates: start: 20191126, end: 20191210
  6. CARBIDOPA\LEVODOPA [Suspect]
     Active Substance: CARBIDOPA\LEVODOPA
     Dosage: MD: 4 ML CD: 1.3 ML/HR ? 16 HRS
     Route: 050
     Dates: start: 20191210, end: 20200303
  7. CARBIDOPA\LEVODOPA [Suspect]
     Active Substance: CARBIDOPA\LEVODOPA
     Dosage: MD: 4 ML CD: 1.2 ML/HR ? 16 HRS
     Route: 050
     Dates: start: 20200303, end: 20200320
  8. CARBIDOPA\LEVODOPA [Suspect]
     Active Substance: CARBIDOPA\LEVODOPA
     Dosage: MD: 3.9 ML?CD: 1.2 ML/HR ? 16 HRS?ED: 0.8 ML/UNIT ? 0
     Route: 050
     Dates: start: 20210817, end: 20210929
  9. ROTIGOTINE [Concomitant]
     Active Substance: ROTIGOTINE
     Indication: Parkinson^s disease
     Route: 062
  10. CELECOXIB [Concomitant]
     Active Substance: CELECOXIB
     Indication: Product used for unknown indication
     Route: 048
     Dates: end: 20210719
  11. MAGNESIUM OXIDE [Concomitant]
     Active Substance: MAGNESIUM OXIDE
     Indication: Product used for unknown indication
     Dosage: 1940 UNKNOWN
     Route: 048
     Dates: end: 20201027
  12. MAGNESIUM OXIDE [Concomitant]
     Active Substance: MAGNESIUM OXIDE
     Indication: Product used for unknown indication
  13. RAMELTEON [Concomitant]
     Active Substance: RAMELTEON
     Indication: Product used for unknown indication
     Dosage: 8 UNKNOWN
     Route: 048

REACTIONS (10)
  - Bradykinesia [Recovering/Resolving]
  - Speech disorder [Unknown]
  - Device use error [Unknown]
  - Asthenia [Unknown]
  - Dyskinesia [Recovered/Resolved]
  - Stoma site discharge [Recovering/Resolving]
  - Stoma site erythema [Recovering/Resolving]
  - Stoma site hypergranulation [Recovering/Resolving]
  - Dyskinesia [Not Recovered/Not Resolved]
  - Unintentional medical device removal [Not Recovered/Not Resolved]

NARRATIVE: CASE EVENT DATE: 20191009
